FAERS Safety Report 19761757 (Version 3)
Quarter: 2022Q1

REPORT INFORMATION
  Report Type: Report from Study
  Country: DE (occurrence: DE)
  Receive Date: 20210830
  Receipt Date: 20220307
  Transmission Date: 20220423
  Serious: Yes (Hospitalization, Other)
  Sender: FDA-Public Use
  Company Number: DE-NOVARTISPH-NVSC2021DE191945

PATIENT
  Sex: Male
  Weight: 147 kg

DRUGS (1)
  1. ILARIS [Suspect]
     Active Substance: CANAKINUMAB
     Indication: Cryopyrin associated periodic syndrome
     Dosage: 150 MG (EVERY 8 WEEKS)
     Route: 058
     Dates: start: 200909

REACTIONS (3)
  - Pilonidal cyst [Recovered/Resolved]
  - Pyrexia [Recovered/Resolved]
  - Perirectal abscess [Unknown]

NARRATIVE: CASE EVENT DATE: 20150330
